FAERS Safety Report 22174453 (Version 1)
Quarter: 2023Q2

REPORT INFORMATION
  Report Type: Spontaneous
  Country: US (occurrence: US)
  Receive Date: 20230405
  Receipt Date: 20230405
  Transmission Date: 20230721
  Serious: No
  Sender: FDA-Public Use
  Company Number: US-ELI_LILLY_AND_COMPANY-US202303015369

PATIENT
  Sex: Female
  Weight: 117.5 kg

DRUGS (15)
  1. MOUNJARO [Suspect]
     Active Substance: TIRZEPATIDE
     Indication: Product used for unknown indication
     Dosage: UNK UNK, UNKNOWN
     Route: 065
  2. KORLYM [Suspect]
     Active Substance: MIFEPRISTONE
     Indication: Cushing^s syndrome
     Dosage: 300 MG, DAILY
     Route: 048
     Dates: start: 20220524, end: 202207
  3. TRULICITY [Concomitant]
     Active Substance: DULAGLUTIDE
     Indication: Product used for unknown indication
  4. ASPIRIN [Concomitant]
     Active Substance: ASPIRIN
     Indication: Product used for unknown indication
     Dosage: 81 MG
  5. FISH OIL [Concomitant]
     Active Substance: FISH OIL
     Indication: Product used for unknown indication
  6. HYDROCHLOROTHIAZIDE [Concomitant]
     Active Substance: HYDROCHLOROTHIAZIDE
     Indication: Product used for unknown indication
  7. IBU [Concomitant]
     Active Substance: IBUPROFEN
     Indication: Product used for unknown indication
  8. METAXALONE [Concomitant]
     Active Substance: METAXALONE
     Indication: Product used for unknown indication
  9. NEXIUM I.V. [Concomitant]
     Active Substance: ESOMEPRAZOLE SODIUM
     Indication: Product used for unknown indication
  10. OLMESARTAN [Concomitant]
     Active Substance: OLMESARTAN
     Indication: Product used for unknown indication
  11. PAXIL CR [Concomitant]
     Active Substance: PAROXETINE HYDROCHLORIDE
     Indication: Product used for unknown indication
  12. ROSUVASTATIN [Concomitant]
     Active Substance: ROSUVASTATIN
     Indication: Product used for unknown indication
  13. VITAMIN D NOS [Concomitant]
     Active Substance: VITAMIN D NOS
     Indication: Product used for unknown indication
  14. ZINC [Concomitant]
     Active Substance: ZINC
     Indication: Product used for unknown indication
  15. ACETAMINOPHEN\TRAMADOL [Concomitant]
     Active Substance: ACETAMINOPHEN\TRAMADOL
     Indication: Product used for unknown indication

REACTIONS (9)
  - Glomerular filtration rate decreased [Unknown]
  - Fungal infection [Recovering/Resolving]
  - Nutritional condition abnormal [Unknown]
  - Fluid intake reduced [Unknown]
  - Dehydration [Unknown]
  - Arthralgia [Recovering/Resolving]
  - Muscle spasms [Recovering/Resolving]
  - Hypophagia [Unknown]
  - Decreased appetite [Unknown]
